FAERS Safety Report 10727417 (Version 1)
Quarter: 2015Q1

REPORT INFORMATION
  Report Type: Spontaneous
  Country: US (occurrence: US)
  Receive Date: 20150121
  Receipt Date: 20150121
  Transmission Date: 20150721
  Serious: No
  Sender: FDA-Public Use
  Company Number: US-TEVA-531622USA

PATIENT
  Age: 57 Year
  Sex: Female
  Weight: 54.48 kg

DRUGS (2)
  1. PROAIR HFA [Suspect]
     Active Substance: ALBUTEROL SULFATE
     Indication: ASTHMA
     Route: 055
     Dates: start: 20141222
  2. BACTRIM [Concomitant]
     Active Substance: SULFAMETHOXAZOLE\TRIMETHOPRIM
     Indication: NASOPHARYNGITIS

REACTIONS (4)
  - Hot flush [Unknown]
  - Swelling face [Unknown]
  - Sunburn [Unknown]
  - Erythema [Unknown]

NARRATIVE: CASE EVENT DATE: 20141223
